FAERS Safety Report 6030256-3 (Version None)
Quarter: 2009Q1

REPORT INFORMATION
  Report Type: 
  Country: None (occurrence: None)
  Receive Date: 20090105
  Receipt Date: 20090105
  Transmission Date: 20090719
  Serious: Yes (Other)
  Sender: FDA-Public Use
  Company Number: None

PATIENT
  Age: 50 Year
  Sex: Male
  Weight: 97.5234 kg

DRUGS (1)
  1. VERSED [Suspect]
     Indication: COLONOSCOPY
     Dates: start: 20081117, end: 20081117

REACTIONS (3)
  - AMNESIA [None]
  - ANXIETY [None]
  - DEPRESSION [None]
